FAERS Safety Report 22123493 (Version 1)
Quarter: 2023Q1

REPORT INFORMATION
  Report Type: Report from Study
  Country: US (occurrence: US)
  Receive Date: 20230322
  Receipt Date: 20230322
  Transmission Date: 20230418
  Serious: No
  Sender: FDA-Public Use
  Company Number: US-002147023-NVSC2023US060365

PATIENT
  Sex: Male
  Weight: 87.08 kg

DRUGS (2)
  1. IBUPROFEN [Suspect]
     Active Substance: IBUPROFEN
     Indication: Ankylosing spondylitis
     Dosage: 800 MG, TID
     Route: 048
  2. KETOROLAC [Suspect]
     Active Substance: KETOROLAC TROMETHAMINE
     Indication: Product used for unknown indication
     Route: 048

REACTIONS (7)
  - Musculoskeletal stiffness [Unknown]
  - Neck pain [Not Recovered/Not Resolved]
  - Arthralgia [Not Recovered/Not Resolved]
  - Pain in jaw [Unknown]
  - Rotator cuff syndrome [Unknown]
  - Temporomandibular joint syndrome [Unknown]
  - Muscle spasms [Unknown]
